FAERS Safety Report 25239793 (Version 1)
Quarter: 2025Q2

REPORT INFORMATION
  Report Type: Spontaneous
  Country: JP (occurrence: JP)
  Receive Date: 20250425
  Receipt Date: 20250425
  Transmission Date: 20250716
  Serious: Yes (Death, Hospitalization)
  Sender: MYLAN
  Company Number: JP-VIATRISJAPAN-2025M1034762AA

PATIENT
  Age: 4 Decade
  Sex: Female

DRUGS (40)
  1. LYRICA [Suspect]
     Active Substance: PREGABALIN
     Indication: Schizophrenia
  2. LYRICA [Suspect]
     Active Substance: PREGABALIN
     Route: 048
  3. LYRICA [Suspect]
     Active Substance: PREGABALIN
     Route: 048
  4. LYRICA [Suspect]
     Active Substance: PREGABALIN
  5. ACETAMINOPHEN [Suspect]
     Active Substance: ACETAMINOPHEN
     Indication: Analgesic therapy
  6. ACETAMINOPHEN [Suspect]
     Active Substance: ACETAMINOPHEN
     Route: 048
  7. ACETAMINOPHEN [Suspect]
     Active Substance: ACETAMINOPHEN
     Route: 048
  8. ACETAMINOPHEN [Suspect]
     Active Substance: ACETAMINOPHEN
  9. ARIPIPRAZOLE [Suspect]
     Active Substance: ARIPIPRAZOLE
     Indication: Schizophrenia
  10. ARIPIPRAZOLE [Suspect]
     Active Substance: ARIPIPRAZOLE
     Route: 048
  11. ARIPIPRAZOLE [Suspect]
     Active Substance: ARIPIPRAZOLE
     Route: 048
  12. ARIPIPRAZOLE [Suspect]
     Active Substance: ARIPIPRAZOLE
  13. BLONANSERIN [Suspect]
     Active Substance: BLONANSERIN
     Indication: Schizophrenia
  14. BLONANSERIN [Suspect]
     Active Substance: BLONANSERIN
     Route: 048
  15. BLONANSERIN [Suspect]
     Active Substance: BLONANSERIN
     Route: 048
  16. BLONANSERIN [Suspect]
     Active Substance: BLONANSERIN
  17. BROMAZEPAM [Interacting]
     Active Substance: BROMAZEPAM
     Indication: Schizophrenia
  18. BROMAZEPAM [Interacting]
     Active Substance: BROMAZEPAM
     Route: 048
  19. BROMAZEPAM [Interacting]
     Active Substance: BROMAZEPAM
     Route: 048
  20. BROMAZEPAM [Interacting]
     Active Substance: BROMAZEPAM
  21. CLOTIAZEPAM [Interacting]
     Active Substance: CLOTIAZEPAM
     Indication: Schizophrenia
  22. CLOTIAZEPAM [Interacting]
     Active Substance: CLOTIAZEPAM
     Route: 048
  23. CLOTIAZEPAM [Interacting]
     Active Substance: CLOTIAZEPAM
     Route: 048
  24. CLOTIAZEPAM [Interacting]
     Active Substance: CLOTIAZEPAM
  25. LEVOMEPROMAZINE [Suspect]
     Active Substance: LEVOMEPROMAZINE
     Indication: Schizophrenia
  26. LEVOMEPROMAZINE [Suspect]
     Active Substance: LEVOMEPROMAZINE
     Route: 048
  27. LEVOMEPROMAZINE [Suspect]
     Active Substance: LEVOMEPROMAZINE
     Route: 048
  28. LEVOMEPROMAZINE [Suspect]
     Active Substance: LEVOMEPROMAZINE
  29. PROMETHAZINE [Suspect]
     Active Substance: PROMETHAZINE HYDROCHLORIDE
     Indication: Schizophrenia
  30. PROMETHAZINE [Suspect]
     Active Substance: PROMETHAZINE HYDROCHLORIDE
     Route: 048
  31. PROMETHAZINE [Suspect]
     Active Substance: PROMETHAZINE HYDROCHLORIDE
     Route: 048
  32. PROMETHAZINE [Suspect]
     Active Substance: PROMETHAZINE HYDROCHLORIDE
  33. METFORMIN [Suspect]
     Active Substance: METFORMIN HYDROCHLORIDE
     Indication: Diabetes mellitus
  34. METFORMIN [Suspect]
     Active Substance: METFORMIN HYDROCHLORIDE
     Route: 048
  35. METFORMIN [Suspect]
     Active Substance: METFORMIN HYDROCHLORIDE
     Route: 048
  36. METFORMIN [Suspect]
     Active Substance: METFORMIN HYDROCHLORIDE
  37. TRAMADOL [Interacting]
     Active Substance: TRAMADOL
     Indication: Analgesic therapy
  38. TRAMADOL [Interacting]
     Active Substance: TRAMADOL
     Route: 048
  39. TRAMADOL [Interacting]
     Active Substance: TRAMADOL
     Route: 048
  40. TRAMADOL [Interacting]
     Active Substance: TRAMADOL

REACTIONS (4)
  - Toxicity to various agents [Fatal]
  - Cardio-respiratory arrest [Fatal]
  - Depressed level of consciousness [Fatal]
  - Prescription drug used without a prescription [Fatal]
